FAERS Safety Report 5035145-9 (Version None)
Quarter: 2006Q2

REPORT INFORMATION
  Report Type: 
  Country: None (occurrence: None)
  Receive Date: 20060519
  Receipt Date: 20060327
  Transmission Date: 20061013
  Serious: No
  Sender: FDA-Public Use
  Company Number: TPA2006A00112

PATIENT
  Age: 67 Year
  Sex: Female

DRUGS (9)
  1. ROZEREM [Suspect]
     Indication: SLEEP DISORDER
     Dosage: 8 MG, PER ORAL
     Route: 048
     Dates: start: 20051010, end: 20051014
  2. DIAZEPAM [Concomitant]
  3. AMBIEN (ZOLPIDEM TARTRATE) (10 MILLIGRAM) [Concomitant]
  4. DARVON (DEXTROPROPOXYPHENE HYDROCHLORIDE) (160 MILLIGRAM) [Concomitant]
  5. LIPITOR (SIMVASTATIN) (10 MILLIGRAM) [Concomitant]
  6. GLUCOSAMINE/CHONDROITIN (GLUCOSAMINE, CHRONDROITIN SULFATE) [Concomitant]
  7. OMEGA 3 (FISH OIL) (200 MILLIGRAM) [Concomitant]
  8. MULTIVITAMIN WITH B COMPLEX (ERGOCALCIFEROL, ASCORBIC ACID, FOLIC ACID [Concomitant]
  9. CHROMIUM PICOLINATE (CHROMINIUM PICOLINATE) [Concomitant]

REACTIONS (5)
  - DRUG INEFFECTIVE [None]
  - INSOMNIA [None]
  - PARADOXICAL DRUG REACTION [None]
  - POOR QUALITY SLEEP [None]
  - PSYCHOMOTOR HYPERACTIVITY [None]
